FAERS Safety Report 10301981 (Version 2)
Quarter: 2014Q3

REPORT INFORMATION
  Report Type: Spontaneous
  Country: US (occurrence: US)
  Receive Date: 20140714
  Receipt Date: 20140718
  Transmission Date: 20150326
  Serious: No
  Sender: FDA-Public Use
  Company Number: US-009507513-1407USA005059

PATIENT
  Age: 68 Year
  Sex: Female
  Weight: 72.56 kg

DRUGS (3)
  1. OXYTROL FOR WOMEN [Suspect]
     Active Substance: OXYBUTYNIN
     Indication: INCONTINENCE
     Dosage: 1 DF, ONCE
     Route: 062
     Dates: start: 20140625, end: 20140625
  2. GONGJINHYANG SEOL WHITENING INTENSIVE [Concomitant]
     Active Substance: DIACETYL BENZOYL LATHYROL
     Indication: ANAEMIA
     Dosage: UNK, UNKNOWN
  3. NEXIUM [Concomitant]
     Active Substance: ESOMEPRAZOLE MAGNESIUM
     Indication: GASTROOESOPHAGEAL REFLUX DISEASE
     Dosage: UNK, UNKNOWN

REACTIONS (5)
  - Application site erythema [Unknown]
  - Application site rash [Unknown]
  - Application site pruritus [Unknown]
  - Drug ineffective [Unknown]
  - Application site pain [Unknown]

NARRATIVE: CASE EVENT DATE: 201406
